FAERS Safety Report 17478334 (Version 2)
Quarter: 2020Q1

REPORT INFORMATION
  Report Type: Spontaneous
  Country: US (occurrence: US)
  Receive Date: 20200228
  Receipt Date: 20200228
  Transmission Date: 20200409
  Serious: No
  Sender: FDA-Public Use
  Company Number: US-JNJFOC-20200223014

PATIENT
  Sex: Female

DRUGS (1)
  1. WOMENS ROGAINE UNSCENTED [Suspect]
     Active Substance: MINOXIDIL
     Indication: ALOPECIA
     Dosage: HALF A CAPFUL ?LAST USED PRODUCT ON 12/FEB/2020.
     Route: 061
     Dates: start: 2019

REACTIONS (2)
  - Skin irritation [Recovered/Resolved]
  - Therapeutic product effect incomplete [Unknown]
